FAERS Safety Report 8522466-8 (Version None)
Quarter: 2012Q3

REPORT INFORMATION
  Report Type: 
  Country: None (occurrence: None)
  Receive Date: 20120719
  Receipt Date: 20120710
  Transmission Date: 20120928
  Serious: Yes (Other)
  Sender: FDA-Public Use
  Company Number: US-BAXTER-2012BAX010173

PATIENT
  Sex: Male
  Weight: 20.91 kg

DRUGS (5)
  1. NOVOSEVEN [Concomitant]
     Route: 042
  2. RECOMBINATE [Suspect]
     Indication: FACTOR VIII INHIBITION
     Route: 042
  3. ADVATE [Suspect]
     Indication: IMMUNE TOLERANCE INDUCTION
     Route: 042
     Dates: start: 20120501
  4. ADVATE [Suspect]
     Route: 042
     Dates: start: 20091001, end: 20120101
  5. ADVATE [Suspect]
     Indication: FACTOR VIII INHIBITION

REACTIONS (1)
  - DEVICE RELATED INFECTION [None]
